FAERS Safety Report 9655500 (Version 12)
Quarter: 2014Q1

REPORT INFORMATION
  Report Type: Report from Study
  Country: NL (occurrence: NL)
  Receive Date: 20131029
  Receipt Date: 20140324
  Transmission Date: 20141002
  Serious: Yes (Hospitalization, Other)
  Sender: FDA-Public Use
  Company Number: NL-ROCHE-1288108

PATIENT
  Age: 4 Year
  Sex: Male
  Weight: 18.3 kg

DRUGS (24)
  1. BEVACIZUMAB [Suspect]
     Indication: NEOPLASM MALIGNANT
     Dosage: LAST DOSE PRIOR TO SAE: 25/SEP/2013
     Route: 042
     Dates: start: 20130902, end: 20131016
  2. DOXORUBICIN [Suspect]
     Indication: NEOPLASM MALIGNANT
     Dosage: LAST DOSE PRIOR TO SAE: 26/SEP/2013
     Route: 042
     Dates: start: 20130902
  3. DACTINOMYCIN [Suspect]
     Indication: NEOPLASM MALIGNANT
     Dosage: LAST DOSE PRIOR TO SAE: 06/11/2013
     Route: 042
     Dates: start: 20130902
  4. VINCRISTINE [Suspect]
     Indication: NEOPLASM MALIGNANT
     Dosage: LAST DOSE PRIOR TO SAE: 09/OCT/2013
     Route: 042
     Dates: start: 20130902, end: 20131016
  5. IFOSFAMIDE [Suspect]
     Indication: NEOPLASM MALIGNANT
     Dosage: LAST DOSE PRIOR TO SAE: 07/NOV/2013
     Route: 042
     Dates: start: 20130902
  6. FORLAX [Concomitant]
     Route: 065
     Dates: start: 20130902
  7. DOMPERIDON [Concomitant]
     Route: 065
     Dates: start: 20130903
  8. EMLA [Concomitant]
     Route: 065
     Dates: start: 20130903
  9. ZOFRAN [Concomitant]
     Route: 065
     Dates: start: 20130909
  10. COLISTINE [Concomitant]
     Route: 065
     Dates: start: 20131002
  11. CO-TRIMOXAZOLE [Concomitant]
     Route: 065
     Dates: start: 20131002
  12. STESOLID [Concomitant]
     Route: 065
     Dates: start: 20131008, end: 20131009
  13. NYSTATINE [Concomitant]
     Dosage: DAILY DOSE : 1.8 X 10^6 IE
     Route: 065
     Dates: start: 20130902
  14. DEXAMETASON [Concomitant]
     Route: 065
     Dates: start: 20131016, end: 20131019
  15. DEXAMETASON [Concomitant]
     Route: 065
     Dates: start: 20131106, end: 20131108
  16. DIAZEPAM [Concomitant]
     Route: 065
     Dates: start: 20131018, end: 20131018
  17. NEUPOGEN [Concomitant]
     Route: 065
     Dates: start: 20131023, end: 20131031
  18. NEUPOGEN [Concomitant]
     Route: 065
     Dates: start: 20131109
  19. NEUPOGEN [Concomitant]
     Route: 065
     Dates: start: 20131115
  20. PARACETAMOL [Concomitant]
     Route: 065
     Dates: start: 20131016, end: 20131111
  21. VANCOMYCIN [Concomitant]
     Route: 065
     Dates: start: 20131028, end: 20131031
  22. GENTAMICIN [Concomitant]
     Route: 065
     Dates: start: 20131028, end: 20131031
  23. CEFUROXIM [Concomitant]
     Route: 065
     Dates: start: 20131025, end: 20131025
  24. AMOXICILLIN [Concomitant]
     Route: 065
     Dates: start: 20131029, end: 20131029

REACTIONS (3)
  - Vocal cord paresis [Recovered/Resolved with Sequelae]
  - Stomatitis [Recovered/Resolved]
  - Subclavian vein thrombosis [Not Recovered/Not Resolved]
